FAERS Safety Report 5389051-0 (Version None)
Quarter: 2007Q3

REPORT INFORMATION
  Report Type: 
  Country: None (occurrence: None)
  Receive Date: 20070717
  Receipt Date: 20070709
  Transmission Date: 20080115
  Serious: Yes (Death, Life-Threatening, Hospitalization)
  Sender: FDA-Public Use
  Company Number: GB-BAYER-200710737BNE

PATIENT
  Age: 90 Year
  Sex: Male

DRUGS (3)
  1. ASPIRIN [Suspect]
     Indication: ACUTE CORONARY SYNDROME
  2. CLEXANE [Interacting]
     Indication: ACUTE CORONARY SYNDROME
     Route: 058
  3. PLAVIX [Interacting]
     Indication: ACUTE CORONARY SYNDROME
     Route: 048

REACTIONS (2)
  - TRAUMATIC HAEMATOMA [None]
  - WOUND SEPSIS [None]
